FAERS Safety Report 14113004 (Version 1)
Quarter: 2017Q4

REPORT INFORMATION
  Report Type: Report from Study
  Country: None (occurrence: US)
  Receive Date: 20171022
  Receipt Date: 20171022
  Transmission Date: 20180321
  Serious: Yes (Other)
  Sender: FDA-Public Use
  Company Number: US-ABBVIE-17K-163-2134401-00

PATIENT
  Age: 60 Year
  Sex: Female

DRUGS (1)
  1. HUMIRA [Suspect]
     Active Substance: ADALIMUMAB
     Indication: RHEUMATOID ARTHRITIS
     Route: 058
     Dates: end: 201706

REACTIONS (3)
  - Systemic lupus erythematosus [Not Recovered/Not Resolved]
  - Pulmonary mass [Not Recovered/Not Resolved]
  - Pneumonia [Recovered/Resolved]

NARRATIVE: CASE EVENT DATE: 2015
